FAERS Safety Report 4990830-X (Version None)
Quarter: 2006Q2

REPORT INFORMATION
  Report Type: 
  Country: None (occurrence: None)
  Receive Date: 20060428
  Receipt Date: 20060414
  Transmission Date: 20061013
  Serious: Yes (Hospitalization)
  Sender: FDA-Public Use
  Company Number: MEDI-0004458

PATIENT
  Age: 3 Month
  Sex: 0
  Weight: 3.08 kg

DRUGS (1)
  1. SYNAGIS [Suspect]
     Indication: ANTIVIRAL PROPHYLAXIS
     Dosage: 46 MG, 1 IN 1 30 D, INTRAMUSCULAR
     Route: 030
     Dates: start: 20051231, end: 20060120

REACTIONS (1)
  - BRONCHIOLITIS [None]
